FAERS Safety Report 6500045-1 (Version None)
Quarter: 2009Q4

REPORT INFORMATION
  Report Type: 
  Country: None (occurrence: None)
  Receive Date: 20091216
  Receipt Date: 20091204
  Transmission Date: 20100525
  Serious: Yes (Other)
  Sender: FDA-Public Use
  Company Number: US-JNJFOC-20091202327

PATIENT
  Sex: Female
  Weight: 88 kg

DRUGS (1)
  1. REMICADE [Suspect]
     Indication: PSORIATIC ARTHROPATHY
     Route: 042

REACTIONS (9)
  - BLOOD MAGNESIUM DECREASED [None]
  - HEAD INJURY [None]
  - HYPOKINESIA [None]
  - LOSS OF CONSCIOUSNESS [None]
  - OROPHARYNGEAL PAIN [None]
  - SKIN LACERATION [None]
  - TOOTHACHE [None]
  - TRISMUS [None]
  - VIRAL INFECTION [None]
